FAERS Safety Report 10929695 (Version 1)
Quarter: 2015Q1

REPORT INFORMATION
  Report Type: Spontaneous
  Country: DK (occurrence: DK)
  Receive Date: 20150319
  Receipt Date: 20150319
  Transmission Date: 20150721
  Serious: Yes (Hospitalization)
  Sender: FDA-Public Use
  Company Number: DK-PFIZER INC-2015096531

PATIENT
  Age: 22 Year
  Sex: Male
  Weight: 78 kg

DRUGS (5)
  1. CHAMPIX [Suspect]
     Active Substance: VARENICLINE TARTRATE
     Indication: SMOKING CESSATION THERAPY
     Dosage: 1 MG, 2X/DAY
     Route: 048
     Dates: start: 20150216, end: 20150306
  2. SPERSADEX COMP [Concomitant]
     Indication: EYE INFLAMMATION
     Dosage: UNK
     Route: 047
  3. NEVANAC [Concomitant]
     Active Substance: NEPAFENAC
     Indication: EYE INFLAMMATION
     Dosage: UNK
     Route: 047
  4. VITAMIN D3 [Concomitant]
     Active Substance: CHOLECALCIFEROL
     Indication: VITAMIN D DEFICIENCY
     Dosage: UNK
  5. BETOLVEX [Concomitant]
     Active Substance: CYANOCOBALAMIN
     Indication: VITAMIN B12 DEFICIENCY
     Dosage: UNK
     Route: 048

REACTIONS (2)
  - Chest pain [Not Recovered/Not Resolved]
  - Pericarditis [Not Recovered/Not Resolved]

NARRATIVE: CASE EVENT DATE: 20150305
